FAERS Safety Report 8438324-3 (Version None)
Quarter: 2012Q2

REPORT INFORMATION
  Report Type: 
  Country: None (occurrence: None)
  Receive Date: 20120614
  Receipt Date: 20120601
  Transmission Date: 20120825
  Serious: Yes (Life-Threatening, Hospitalization, Other)
  Sender: FDA-Public Use
  Company Number: US-ACTELION-A-NJ2012-61716

PATIENT

DRUGS (26)
  1. NORVASC [Concomitant]
  2. COLACE [Concomitant]
  3. OXYGEN [Concomitant]
  4. MIRALAX [Concomitant]
  5. APRESOLINE [Concomitant]
  6. ZAROXOLYN [Concomitant]
  7. DOSS [Concomitant]
  8. ACETYLSALICYLIC ACID SRT [Concomitant]
  9. COLCHICINE [Concomitant]
  10. PRILOSEC [Concomitant]
  11. BACTRIM [Concomitant]
  12. TORSEMIDE [Concomitant]
  13. NOVOLOG [Concomitant]
  14. BUMEX [Concomitant]
  15. PROCRIT [Concomitant]
  16. LEXAPRO [Concomitant]
  17. M.V.I. [Concomitant]
  18. COUMADIN [Concomitant]
  19. ALLOPURINOL [Concomitant]
  20. LOPRESSOR [Concomitant]
  21. TRAMADOL HCL [Concomitant]
  22. TRACLEER [Suspect]
     Indication: PULMONARY ARTERIAL HYPERTENSION
     Dosage: UNK
     Route: 048
     Dates: start: 20100616
  23. VANCOMYCIN [Concomitant]
  24. POTASSIUM CHLORIDE [Concomitant]
  25. INSULIN [Concomitant]
  26. SYNTHROID [Concomitant]

REACTIONS (13)
  - URINARY TRACT INFECTION FUNGAL [None]
  - RADICULITIS LUMBOSACRAL [None]
  - BACK PAIN [None]
  - FRACTURED SACRUM [None]
  - DYSPNOEA [None]
  - PNEUMONIA [None]
  - STAPHYLOCOCCAL INFECTION [None]
  - GAIT DISTURBANCE [None]
  - RADICULITIS CERVICAL [None]
  - FLUID OVERLOAD [None]
  - INTERVERTEBRAL DISCITIS [None]
  - LUMBAR SPINAL STENOSIS [None]
  - URINARY TRACT INFECTION [None]
